FAERS Safety Report 5590959-1 (Version None)
Quarter: 2007Q4

REPORT INFORMATION
  Report Type: 
  Country: None (occurrence: None)
  Receive Date: 20071212
  Receipt Date: 20071012
  Transmission Date: 20080405
  Serious: No
  Sender: FDA-Public Use
  Company Number: 2007RL000452

PATIENT
  Age: 59 Year
  Sex: Female
  Weight: 63.5036 kg

DRUGS (4)
  1. LOVAZA [Suspect]
     Indication: BLOOD CHOLESTEROL INCREASED
     Dosage: 3 GM;QD;PO ; 4 GM;QD;PO
     Route: 048
     Dates: start: 20070801, end: 20071013
  2. LOVAZA [Suspect]
     Indication: BLOOD CHOLESTEROL INCREASED
     Dosage: 3 GM;QD;PO ; 4 GM;QD;PO
     Route: 048
     Dates: start: 20071013
  3. ZETIA [Concomitant]
  4. PLAVIX [Concomitant]

REACTIONS (3)
  - ACNE [None]
  - OFF LABEL USE [None]
  - TREATMENT NONCOMPLIANCE [None]
